FAERS Safety Report 5902018-6 (Version None)
Quarter: 2008Q3

REPORT INFORMATION
  Report Type: 
  Country: None (occurrence: None)
  Receive Date: 20080929
  Receipt Date: 20080917
  Transmission Date: 20090109
  Serious: Yes (Death, Life-Threatening, Hospitalization, Other)
  Sender: FDA-Public Use
  Company Number: FR-PFIZER INC-2005166517

PATIENT
  Sex: Female

DRUGS (9)
  1. SU-011,248 [Suspect]
     Indication: RENAL CANCER
     Route: 048
     Dates: start: 20051121, end: 20051204
  2. KEPPRA [Concomitant]
     Route: 055
  3. TRILEPTAL [Concomitant]
  4. PROPRANOLOL [Concomitant]
  5. HYPERICUM ^STADA^ [Concomitant]
  6. MEDROL [Concomitant]
  7. NEXIUM [Concomitant]
  8. FLUCONAZOLE [Concomitant]
  9. METEOSPASMYL [Concomitant]

REACTIONS (5)
  - ASTHENIA [None]
  - DYSPNOEA [None]
  - HYPOTENSION [None]
  - HYPOTHERMIA [None]
  - THROMBOCYTOPENIA [None]
